FAERS Safety Report 23937485 (Version 6)
Quarter: 2024Q3

REPORT INFORMATION
  Report Type: Spontaneous
  Country: JP (occurrence: JP)
  Receive Date: 20240604
  Receipt Date: 20240816
  Transmission Date: 20241016
  Serious: Yes (Other)
  Sender: ARGENX BVBA
  Company Number: JP-ARGENX-2024-ARGX-JP003811AA

PATIENT

DRUGS (9)
  1. EFGARTIGIMOD ALFA [Suspect]
     Active Substance: EFGARTIGIMOD ALFA
     Dosage: UNK
     Route: 042
     Dates: start: 202302, end: 20240322
  2. EFGARTIGIMOD ALFA\HYALURONIDASE-QVFC [Suspect]
     Active Substance: EFGARTIGIMOD ALFA\HYALURONIDASE-QVFC
     Indication: Myasthenia gravis
     Dosage: UNK
     Route: 058
     Dates: start: 20240513, end: 20240603
  3. EFGARTIGIMOD ALFA\HYALURONIDASE-QVFC [Suspect]
     Active Substance: EFGARTIGIMOD ALFA\HYALURONIDASE-QVFC
     Dosage: UNK
     Route: 058
     Dates: start: 20240709, end: 20240730
  4. PREDONINE [Concomitant]
     Active Substance: PREDNISOLONE
     Dosage: 10 MG
     Route: 065
  5. MESTINON [Concomitant]
     Active Substance: PYRIDOSTIGMINE BROMIDE
     Dosage: 60 MG, BID (MORNING, EVENING)
     Route: 065
  6. SULFAMETHOXAZOLE\TRIMETHOPRIM [Concomitant]
     Active Substance: SULFAMETHOXAZOLE\TRIMETHOPRIM
     Dosage: UNK
     Route: 065
  7. LANSOPRAZOLE [Concomitant]
     Active Substance: LANSOPRAZOLE
     Dosage: UNK
     Route: 065
  8. PROGRAF [Concomitant]
     Active Substance: TACROLIMUS
     Dosage: UNK, DAILY (NIGHT)
     Route: 065
  9. ROSUVASTATIN [Concomitant]
     Active Substance: ROSUVASTATIN\ROSUVASTATIN CALCIUM
     Dosage: UNK
     Route: 065

REACTIONS (44)
  - Gastrointestinal lymphoma [Unknown]
  - Grip strength decreased [Unknown]
  - Hyperlipidaemia [Unknown]
  - Hyperparathyroidism [Unknown]
  - Asthenia [Unknown]
  - Muscular weakness [Unknown]
  - Chest discomfort [Unknown]
  - Sense of oppression [Recovered/Resolved]
  - Dyspnoea [Recovered/Resolved]
  - Eyelid ptosis [Unknown]
  - Procedural headache [Recovered/Resolved]
  - Malaise [Unknown]
  - Malaise [Unknown]
  - Sense of oppression [Unknown]
  - Headache [Unknown]
  - Asthenia [Unknown]
  - Diplopia [Unknown]
  - Eyelid ptosis [Unknown]
  - Eyelid ptosis [Unknown]
  - Decreased appetite [Unknown]
  - Anxiety [Unknown]
  - Myasthenia gravis [Unknown]
  - Photophobia [Unknown]
  - Dyspnoea [Unknown]
  - Nausea [Unknown]
  - Malaise [Unknown]
  - Dyspnoea [Recovering/Resolving]
  - Malaise [Unknown]
  - Asthenia [Unknown]
  - Cough [Unknown]
  - Dyspnoea [Unknown]
  - Procedural headache [Unknown]
  - Procedural headache [Recovering/Resolving]
  - Dyspnoea [Recovering/Resolving]
  - Malaise [Recovering/Resolving]
  - Nasopharyngitis [Recovering/Resolving]
  - Physical deconditioning [Unknown]
  - Abdominal pain [Unknown]
  - Injection site erythema [Unknown]
  - Injection site pain [Recovering/Resolving]
  - Injection site pruritus [Recovering/Resolving]
  - Injection site urticaria [Recovering/Resolving]
  - Procedural headache [Unknown]
  - Headache [Unknown]

NARRATIVE: CASE EVENT DATE: 20240513
